FAERS Safety Report 25913452 (Version 1)
Quarter: 2025Q4

REPORT INFORMATION
  Report Type: Spontaneous
  Country: GB (occurrence: GB)
  Receive Date: 20251013
  Receipt Date: 20251013
  Transmission Date: 20260118
  Serious: Yes (Other)
  Sender: PFIZER
  Company Number: None

PATIENT
  Age: 20 Year
  Sex: Female
  Weight: 53 kg

DRUGS (3)
  1. MEDROXYPROGESTERONE\MEDROXYPROGESTERONE ACETATE [Suspect]
     Active Substance: MEDROXYPROGESTERONE\MEDROXYPROGESTERONE ACETATE
     Dosage: 104MG/0.65 ML
  2. CEPHALEXIN [Concomitant]
     Active Substance: CEPHALEXIN
     Dosage: TAKE ONE CAPSULE TWICE A DAY FOR SEVEN DAYS
     Dates: start: 20250929, end: 20251006
  3. AMDINOCILLIN PIVOXIL [Concomitant]
     Active Substance: AMDINOCILLIN PIVOXIL
     Indication: Urinary tract infection
     Dosage: LOWER UTI IN WOMEN (NON PREGNANT WOMEN }16Y): S...
     Dates: start: 20251002, end: 20251005

REACTIONS (2)
  - Soft tissue necrosis [Not Recovered/Not Resolved]
  - Muscle necrosis [Unknown]
